FAERS Safety Report 4682172-7 (Version None)
Quarter: 2005Q2

REPORT INFORMATION
  Report Type: 
  Country: None (occurrence: None)
  Receive Date: 20050606
  Receipt Date: 20050527
  Transmission Date: 20051028
  Serious: Yes (Other)
  Sender: FDA-Public Use
  Company Number: DE-AMGEN-UK136445

PATIENT

DRUGS (2)
  1. ARANESP [Suspect]
     Indication: ANAEMIA OF MALIGNANT DISEASE
  2. ERYPO [Suspect]

REACTIONS (4)
  - AGRANULOCYTOSIS [None]
  - ANAEMIA [None]
  - LEUKOPENIA [None]
  - THROMBOCYTOPENIA [None]
